FAERS Safety Report 10038193 (Version 1)
Quarter: 2014Q1

REPORT INFORMATION
  Report Type: Spontaneous
  Country: US (occurrence: None)
  Receive Date: 20140325
  Receipt Date: 20140325
  Transmission Date: 20141002
  Serious: Yes (Other)
  Sender: FDA-Public Use
  Company Number: None

PATIENT
  Age: 36 Year
  Sex: Female
  Weight: 147.87 kg

DRUGS (10)
  1. LANTUS [Suspect]
     Indication: TYPE 2 DIABETES MELLITUS
     Dates: start: 20140224, end: 20140310
  2. FLOVENT [Concomitant]
  3. PROAIR [Concomitant]
  4. METFORMIN [Concomitant]
  5. PAXIL [Concomitant]
  6. PRINIVIL [Concomitant]
  7. ASPIRIN [Concomitant]
  8. RANTIDINE [Concomitant]
  9. PRILOSEC [Concomitant]
  10. FLAXSEED OIL [Concomitant]

REACTIONS (6)
  - Pruritus [None]
  - Nausea [None]
  - Wheezing [None]
  - Erythema [None]
  - Vulvovaginal pruritus [None]
  - Anal pruritus [None]
